FAERS Safety Report 24086631 (Version 3)
Quarter: 2024Q3

REPORT INFORMATION
  Report Type: Spontaneous
  Country: RU (occurrence: RU)
  Receive Date: 20240713
  Receipt Date: 20240819
  Transmission Date: 20241017
  Serious: Yes (Other)
  Sender: JOHNSON AND JOHNSON
  Company Number: RU-JNJFOC-20240721602

PATIENT
  Sex: Male
  Weight: 55 kg

DRUGS (12)
  1. SIRTURO [Suspect]
     Active Substance: BEDAQUILINE FUMARATE
     Indication: Tuberculosis
     Dosage: 0.4
     Route: 048
     Dates: start: 20240412
  2. SIRTURO [Suspect]
     Active Substance: BEDAQUILINE FUMARATE
     Dosage: 0.2* 3 TIMES PER WEEK
     Route: 048
     Dates: start: 20240425
  3. SIRTURO [Suspect]
     Active Substance: BEDAQUILINE FUMARATE
     Dosage: 0.2* 3 TIMES PER WEEK
     Route: 048
     Dates: start: 20240425, end: 20240703
  4. MOXIFLOXACIN [Suspect]
     Active Substance: MOXIFLOXACIN
     Indication: Tuberculosis
     Dosage: 0.4
     Route: 048
     Dates: start: 20240412, end: 20240703
  5. LINEZOLID [Suspect]
     Active Substance: LINEZOLID
     Indication: Tuberculosis
     Dosage: 0.6
     Route: 048
     Dates: start: 20240412, end: 20240703
  6. LINEZOLID [Suspect]
     Active Substance: LINEZOLID
     Route: 048
     Dates: start: 20240731
  7. PRETOMANID [Suspect]
     Active Substance: PRETOMANID
     Indication: Tuberculosis
     Dosage: 0.2
     Route: 050
     Dates: start: 20240412, end: 20240703
  8. PYRIDOXINE HYDROCHLORIDE [Concomitant]
     Active Substance: PYRIDOXINE HYDROCHLORIDE
     Indication: Anaemia
     Dosage: 150MG
     Route: 042
     Dates: start: 20240702
  9. PYRIDOXINE HYDROCHLORIDE [Concomitant]
     Active Substance: PYRIDOXINE HYDROCHLORIDE
     Indication: Nephropathy toxic
  10. QUETIAPINE [Concomitant]
     Active Substance: QUETIAPINE
     Route: 048
     Dates: start: 20240702
  11. FOLIC ACID [Concomitant]
     Active Substance: FOLIC ACID
     Indication: Anaemia
     Route: 048
     Dates: start: 20240412
  12. BENFOTIAMINE\PYRIDOXINE [Concomitant]
     Active Substance: BENFOTIAMINE\PYRIDOXINE
     Dosage: EVERY SECOND DAY (LZD IN REGIMEN)
     Route: 048

REACTIONS (1)
  - Nephropathy toxic [Recovered/Resolved with Sequelae]

NARRATIVE: CASE EVENT DATE: 20240703
